FAERS Safety Report 6141258-0 (Version None)
Quarter: 2009Q2

REPORT INFORMATION
  Report Type: 
  Country: None (occurrence: None)
  Receive Date: 20090402
  Receipt Date: 20090324
  Transmission Date: 20091009
  Serious: Yes (Other)
  Sender: FDA-Public Use
  Company Number: US-WATSON-2009-01968

PATIENT
  Weight: 71.202 kg

DRUGS (2)
  1. FERRLECIT [Suspect]
     Indication: IRON DEFICIENCY ANAEMIA
     Dosage: 125 MG IV IN 30-45 MINUES
     Route: 042
     Dates: start: 20090312, end: 20090312
  2. FERRLECIT [Suspect]
     Dosage: 125 MG IV IN 30-45 MINUES
     Route: 042
     Dates: start: 20090305, end: 20090305

REACTIONS (4)
  - ARTHRALGIA [None]
  - DYSPNOEA [None]
  - ERYTHEMA [None]
  - JOINT SWELLING [None]
